FAERS Safety Report 7381818-2 (Version None)
Quarter: 2011Q1

REPORT INFORMATION
  Report Type: 
  Country: None (occurrence: None)
  Receive Date: 20110329
  Receipt Date: 20110315
  Transmission Date: 20110831
  Serious: Yes (Other)
  Sender: FDA-Public Use
  Company Number: PHHY2011JP22071

PATIENT
  Age: 50 Year
  Sex: Female
  Weight: 43 kg

DRUGS (7)
  1. TACROLIMUS [Suspect]
     Dosage: UNK
  2. PREDNISOLONE [Concomitant]
     Dosage: 15 MG/DAY
     Route: 065
     Dates: start: 20100601
  3. PREDNISOLONE [Concomitant]
     Dosage: 10 MG/DAY
     Dates: start: 20100601
  4. TACROLIMUS [Suspect]
     Indication: SYSTEMIC LUPUS ERYTHEMATOSUS
     Dosage: 3 MG/DAY
     Dates: start: 20070201, end: 20090604
  5. PREDNISOLONE [Concomitant]
     Indication: SYSTEMIC LUPUS ERYTHEMATOSUS
     Dosage: 20 MG/DAY
     Dates: start: 20030922
  6. PREDNISOLONE [Concomitant]
     Dosage: 40 MG/DAY
  7. PREDNISOLONE [Concomitant]
     Dosage: 15 MG/DAY

REACTIONS (15)
  - TREMOR [None]
  - HYPOREFLEXIA [None]
  - NUCHAL RIGIDITY [None]
  - BRADYPHRENIA [None]
  - MICROGRAPHIA [None]
  - MUSCLE RIGIDITY [None]
  - FREEZING PHENOMENON [None]
  - SLEEP DISORDER [None]
  - ANHEDONIA [None]
  - MOVEMENT DISORDER [None]
  - GAIT DISTURBANCE [None]
  - CONSTIPATION [None]
  - PARKINSONISM [None]
  - HYPERHIDROSIS [None]
  - OSTEONECROSIS [None]
